FAERS Safety Report 20480990 (Version 1)
Quarter: 2022Q1

REPORT INFORMATION
  Report Type: Report from Study
  Country: AU (occurrence: AU)
  Receive Date: 20220216
  Receipt Date: 20220216
  Transmission Date: 20220423
  Serious: Yes (Hospitalization)
  Sender: FDA-Public Use
  Company Number: AU-TEVA-2022-AU-2007363

PATIENT
  Age: 40 Year
  Sex: Male

DRUGS (3)
  1. COPAXONE [Suspect]
     Active Substance: GLATIRAMER ACETATE
     Route: 058
     Dates: start: 20150727, end: 20151027
  2. FISH OIL (natural fish oil) [Concomitant]
     Route: 065
  3. VITAMIN D [Concomitant]
     Active Substance: VITAMIN D NOS
     Route: 065

REACTIONS (4)
  - Injection site haematoma [Recovered/Resolved]
  - Injection site inflammation [Recovered/Resolved]
  - Injection site rash [Recovered/Resolved]
  - Injection site ulcer [Recovered/Resolved]

NARRATIVE: CASE EVENT DATE: 20150818
